FAERS Safety Report 10675897 (Version 1)
Quarter: 2014Q4

REPORT INFORMATION
  Report Type: Spontaneous
  Country: DE (occurrence: DE)
  Receive Date: 20141225
  Receipt Date: 20141225
  Transmission Date: 20150529
  Serious: Yes (Death, Life-Threatening)
  Sender: FDA-Public Use
  Company Number: DE-ACCORD-027724

PATIENT
  Age: 62 Year
  Sex: Male
  Weight: 65 kg

DRUGS (2)
  1. FLUOROURACIL. [Suspect]
     Active Substance: FLUOROURACIL
     Indication: HEAD AND NECK CANCER
     Dosage: 4000 MG/M^2  DAY 1-4 OVER 96 HOUR
     Route: 042
     Dates: start: 20141107, end: 201411
  2. CISPLATIN. [Suspect]
     Active Substance: CISPLATIN
     Indication: HEAD AND NECK CANCER
     Dosage: 172 MG ABSOLUTE?DAY-01
     Route: 042
     Dates: start: 20141107, end: 20141107

REACTIONS (3)
  - Multi-organ failure [Fatal]
  - Tumour lysis syndrome [Unknown]
  - Acute hepatic failure [Fatal]

NARRATIVE: CASE EVENT DATE: 20141114
